FAERS Safety Report 11548213 (Version 1)
Quarter: 2015Q3

REPORT INFORMATION
  Report Type: Spontaneous
  Country: US (occurrence: US)
  Receive Date: 20150924
  Receipt Date: 20150924
  Transmission Date: 20151125
  Serious: No
  Sender: FDA-Public Use
  Company Number: US-INCYTE CORPORATION-2015IN001030

PATIENT

DRUGS (7)
  1. TAMOXIFEN [Concomitant]
     Active Substance: TAMOXIFEN
  2. ASPIRIN. [Concomitant]
     Active Substance: ASPIRIN
  3. IRON [Concomitant]
     Active Substance: IRON
  4. TOPROL XL [Concomitant]
     Active Substance: METOPROLOL SUCCINATE
  5. JAKAFI [Suspect]
     Active Substance: RUXOLITINIB
     Indication: MYELOFIBROSIS
     Dosage: 20 MG, BID
     Route: 048
  6. VITAMIN C [Concomitant]
     Active Substance: ASCORBIC ACID
  7. ANAGRELIDE [Concomitant]
     Active Substance: ANAGRELIDE

REACTIONS (1)
  - Tinnitus [Unknown]
